FAERS Safety Report 5895440-8 (Version None)
Quarter: 2008Q3

REPORT INFORMATION
  Report Type: 
  Country: None (occurrence: None)
  Receive Date: 20080924
  Receipt Date: 20080917
  Transmission Date: 20090109
  Serious: Yes (Other)
  Sender: FDA-Public Use
  Company Number: CN-AVENTIS-200818897GDDC

PATIENT
  Age: 36 Year
  Sex: Female

DRUGS (3)
  1. CEFOTAXIME [Suspect]
     Indication: RHINITIS
     Route: 042
     Dates: start: 20060101, end: 20060101
  2. DEXAMETHASONE [Suspect]
     Route: 042
     Dates: start: 20060101, end: 20060101
  3. PENICILLIN [Suspect]
     Route: 042
     Dates: start: 20060101, end: 20060101

REACTIONS (1)
  - ASPERGILLOSIS [None]
